FAERS Safety Report 5408890-0 (Version None)
Quarter: 2007Q3

REPORT INFORMATION
  Report Type: 
  Country: None (occurrence: None)
  Receive Date: 20070808
  Receipt Date: 20070802
  Transmission Date: 20080115
  Serious: Yes (Other)
  Sender: FDA-Public Use
  Company Number: KR-ROXANE LABORATORIES, INC-2007-DE-04470GD

PATIENT

DRUGS (3)
  1. ASPIRIN [Suspect]
     Indication: PROPHYLAXIS
  2. ASPIRIN [Suspect]
     Indication: THROMBOSIS IN DEVICE
  3. CILOSTAZOL [Suspect]
     Indication: CARDIOVASCULAR EVENT PROPHYLAXIS

REACTIONS (1)
  - CEREBROVASCULAR ACCIDENT [None]
